FAERS Safety Report 16430728 (Version 4)
Quarter: 2021Q1

REPORT INFORMATION
  Report Type: Report from Study
  Country: US (occurrence: US)
  Receive Date: 20190614
  Receipt Date: 20210201
  Transmission Date: 20210419
  Serious: Yes (Death, Hospitalization)
  Sender: FDA-Public Use
  Company Number: PHHO2019US006245

PATIENT
  Age: 77 Year
  Sex: Male
  Weight: 85.3 kg

DRUGS (8)
  1. IBRUTINIB [Concomitant]
     Active Substance: IBRUTINIB
     Indication: CHRONIC LYMPHOCYTIC LEUKAEMIA
     Dosage: 280 MG, UNK
     Route: 048
     Dates: start: 201601
  2. ACYCLOVIR. [Concomitant]
     Active Substance: ACYCLOVIR
     Indication: HERPES ZOSTER OTICUS
     Dosage: UNK
     Route: 066
     Dates: start: 20190508
  3. PREDNISONE. [Suspect]
     Active Substance: PREDNISONE
     Indication: HERPES ZOSTER OTICUS
     Dosage: UNK
     Route: 005
     Dates: start: 20190508, end: 20190521
  4. VALIUM [Concomitant]
     Active Substance: DIAZEPAM
     Indication: HERPES ZOSTER OTICUS
     Dosage: UNK
     Route: 065
     Dates: start: 20190520
  5. GABAPENTIN. [Concomitant]
     Active Substance: GABAPENTIN
     Indication: HERPES ZOSTER OTICUS
     Dosage: UNK
     Route: 065
     Dates: start: 20190508
  6. IMMUNOGLOBULIN [Concomitant]
     Indication: B-CELL APLASIA
     Dosage: EVERY MONTH
     Route: 042
     Dates: start: 20170105
  7. CTL119 [Suspect]
     Active Substance: INVESTIGATIONAL PRODUCT
     Indication: PRODUCT USED FOR UNKNOWN INDICATION
     Dosage: UNK
     Route: 042
     Dates: start: 20161025, end: 20161027
  8. MECLIZINE [Concomitant]
     Active Substance: MECLIZINE HYDROCHLORIDE
     Indication: HERPES ZOSTER OTICUS
     Dosage: 25 MG, TID
     Route: 048
     Dates: start: 20190513

REACTIONS (1)
  - Pneumonia fungal [Fatal]

NARRATIVE: CASE EVENT DATE: 20190528
